FAERS Safety Report 6900293-2 (Version None)
Quarter: 2010Q3

REPORT INFORMATION
  Report Type: 
  Country: None (occurrence: None)
  Receive Date: 20100803
  Receipt Date: 20100719
  Transmission Date: 20110219
  Serious: Yes (Other)
  Sender: FDA-Public Use
  Company Number: PHHY2010US47131

PATIENT
  Sex: Male

DRUGS (3)
  1. FEMARA [Suspect]
     Dosage: 2.5 MG, DAILY
     Dates: start: 20100301
  2. FEMARA [Suspect]
     Dosage: 2.5 MG, QOD
  3. ZOMETA [Suspect]
     Dosage: UNK
     Dates: start: 20091101

REACTIONS (7)
  - BONE PAIN [None]
  - CONSTIPATION [None]
  - DIARRHOEA [None]
  - HOT FLUSH [None]
  - HYPERHIDROSIS [None]
  - PYREXIA [None]
  - RIB FRACTURE [None]
